FAERS Safety Report 5520304-9 (Version None)
Quarter: 2007Q4

REPORT INFORMATION
  Report Type: 
  Country: None (occurrence: None)
  Receive Date: 20071115
  Receipt Date: 20071115
  Transmission Date: 20080405
  Serious: Yes (Other)
  Sender: FDA-Public Use
  Company Number: None

PATIENT
  Sex: Female
  Weight: 90.7194 kg

DRUGS (2)
  1. (BUDEPRION) 300MG X1 [Suspect]
     Indication: DEPRESSION
     Dosage: 1 DAILY ORAL
     Route: 048
     Dates: start: 20060901
  2. (BUDEPRION) 300MG X1 [Suspect]
     Indication: DEPRESSION
     Dosage: 1 DAILY ORAL
     Route: 048
     Dates: start: 20071001

REACTIONS (5)
  - CONDITION AGGRAVATED [None]
  - CRYING [None]
  - DEPRESSION [None]
  - PHARMACEUTICAL PRODUCT COMPLAINT [None]
  - SUICIDAL IDEATION [None]
